FAERS Safety Report 4547902-3 (Version None)
Quarter: 2005Q1

REPORT INFORMATION
  Report Type: 
  Country: None (occurrence: None)
  Receive Date: 20050110
  Receipt Date: 20041230
  Transmission Date: 20050727
  Serious: Yes (Hospitalization)
  Sender: FDA-Public Use
  Company Number: US-JNJFOC-20050100661

PATIENT
  Sex: Female
  Weight: 60.78 kg

DRUGS (5)
  1. REMICADE [Suspect]
     Indication: CROHN'S DISEASE
     Dosage: 4 VIALS
     Route: 042
  2. PENTASA [Concomitant]
  3. AZASAN [Concomitant]
  4. ENTOCORT [Concomitant]
  5. MULTIVITAMIN [Concomitant]

REACTIONS (5)
  - ABSCESS [None]
  - BLOOD TEST ABNORMAL [None]
  - DRUG INEFFECTIVE [None]
  - MALNUTRITION [None]
  - RENAL IMPAIRMENT [None]
